FAERS Safety Report 18644184 (Version 2)
Quarter: 2021Q1

REPORT INFORMATION
  Report Type: Spontaneous
  Country: GB (occurrence: GB)
  Receive Date: 20201221
  Receipt Date: 20210315
  Transmission Date: 20210419
  Serious: Yes (Hospitalization)
  Sender: FDA-Public Use
  Company Number: GB-VERTEX PHARMACEUTICALS-2020-024854

PATIENT
  Sex: Female

DRUGS (31)
  1. KAFTRIO [Suspect]
     Active Substance: ELEXACAFTOR\IVACAFTOR\TEZACAFTOR
     Indication: CYSTIC FIBROSIS
     Dosage: 2 TABS (75MG IVA/ 50MG TEZA/ 100MG ELEXA) IN THE MORNING
     Route: 048
     Dates: start: 20200928
  2. DEOXYRIBONUCLEASE HUMAN [Concomitant]
  3. LACTULOSE. [Concomitant]
     Active Substance: LACTULOSE
     Dosage: 20 ML
  4. SUMATRIPTAN. [Concomitant]
     Active Substance: SUMATRIPTAN
     Indication: MIGRAINE
     Dosage: 50 MG UPTO BID IF NEEDED
  5. AZITHROMYCIN ANHYDROUS. [Concomitant]
     Active Substance: AZITHROMYCIN ANHYDROUS
     Dosage: 500 MG, MONDAY, WEDNESDAY, FRIDAY
  6. VITAMIN E [Concomitant]
     Active Substance: .ALPHA.-TOCOPHEROL
     Dosage: 200 INTERNATIONAL UNIT, QD
  7. ACETYLCYSTEINE. [Concomitant]
     Active Substance: ACETYLCYSTEINE
     Dosage: 600 MG, TID
  8. NEFOPAM [Concomitant]
     Active Substance: NEFOPAM
     Indication: PAIN
     Dosage: 90 MG, UPTO TID, IF NEEDED TAKES OCCASIONALLY
  9. ORAMORPH SR SUSTAINED RELEASE [Concomitant]
     Active Substance: MORPHINE SULFATE
     Indication: PAIN
     Dosage: 5 MG, IF REQUIRED
  10. SALBUTAMOL [Concomitant]
     Active Substance: ALBUTEROL
     Dosage: 2 PUFFS PRN
  11. MOMETASONE [Concomitant]
     Active Substance: MOMETASONE
     Dosage: 2 PUFFS 50 MICROGRAM
  12. CETRIZINE [Concomitant]
     Active Substance: CETIRIZINE HYDROCHLORIDE
     Indication: PRURITUS
     Dosage: 10 MG, QD
  13. APIXABAN [Concomitant]
     Active Substance: APIXABAN
     Dosage: 5 MG, BID
     Dates: start: 202007
  14. VITAMIN A + D [ERGOCALCIFEROL;RETINOL] [Concomitant]
     Dosage: 1 CAPSULE, QD
  15. LAXIDO [Concomitant]
     Active Substance: POLYETHYLENE GLYCOL 3350\POTASSIUM CHLORIDE\SODIUM BICARBONATE\SODIUM CHLORIDE
     Dosage: 2 SACHETS, BID
  16. NALOXEGOL [Concomitant]
     Active Substance: NALOXEGOL
     Dosage: 25 MG, QD, WHILE ON OPIATES
  17. PREGABALIN. [Concomitant]
     Active Substance: PREGABALIN
     Dosage: 300 MG, BID
  18. MONTELUKAST [Concomitant]
     Active Substance: MONTELUKAST SODIUM
     Indication: PRURITUS
     Dosage: 10 MG, QD
  19. IBUPROFEN. [Concomitant]
     Active Substance: IBUPROFEN
     Dosage: 200 MG, TID, IF REQUIRED
  20. DULOXETINE. [Concomitant]
     Active Substance: DULOXETINE
     Dosage: 90 MG, QD
  21. LIDOCAINE. [Concomitant]
     Active Substance: LIDOCAINE
     Dosage: 12 HOURS ON/ 12 HOURS OFF
     Route: 061
  22. FORMOTEROL [Concomitant]
     Active Substance: FORMOTEROL
     Dosage: 1 PUFF 12 MICROGRAM, BID
  23. CREON [Concomitant]
     Active Substance: PANCRELIPASE AMYLASE\PANCRELIPASE LIPASE\PANCRELIPASE PROTEASE
     Dosage: 25000, 1?2 WITH SNACKS, 2?3 WITH MEALS
  24. LEVETIRACETAM. [Concomitant]
     Active Substance: LEVETIRACETAM
     Dosage: 750 MG, BID
  25. BRAMITOB [Concomitant]
     Active Substance: TOBRAMYCIN
     Dosage: ALTERNATE MONTHS
     Route: 055
  26. BISACODYL. [Concomitant]
     Active Substance: BISACODYL
     Dosage: 5 MG, BID
  27. FULTIUM [Concomitant]
     Active Substance: CHOLECALCIFEROL
     Dosage: 3200 INTERNATIONAL UNIT, QD
  28. ESOMEPRAZOLE. [Concomitant]
     Active Substance: ESOMEPRAZOLE MAGNESIUM
     Dosage: 40 MG, QD
  29. MENTHOL. [Concomitant]
     Active Substance: MENTHOL
     Indication: NEURALGIA
     Dosage: 1% IN AQUEOUS CREAM, QID
     Route: 061
  30. KALYDECO [Suspect]
     Active Substance: IVACAFTOR
     Indication: CYSTIC FIBROSIS
     Dosage: 150MG IVACAFTOR IN THE EVENING
     Route: 048
     Dates: start: 20200928
  31. PARACETAMOL [Concomitant]
     Active Substance: ACETAMINOPHEN
     Dosage: 500 MG, QID

REACTIONS (2)
  - Gastrointestinal motility disorder [Recovered/Resolved]
  - Intestinal obstruction [Recovered/Resolved]

NARRATIVE: CASE EVENT DATE: 20201203
